FAERS Safety Report 9022295 (Version 1)
Quarter: 2013Q1

REPORT INFORMATION
  Report Type: Spontaneous
  Country: DE (occurrence: DE)
  Receive Date: 20130118
  Receipt Date: 20130118
  Transmission Date: 20140127
  Serious: Yes (Hospitalization, Other)
  Sender: FDA-Public Use
  Company Number: DE-AMGEN-DEUSP2012077835

PATIENT
  Age: 20 Year
  Sex: Female
  Weight: 60 kg

DRUGS (9)
  1. ENBREL [Suspect]
     Indication: PSORIATIC ARTHROPATHY
     Dosage: 50 MG, WEEKLY
     Route: 058
     Dates: start: 201203, end: 201210
  2. ENBREL [Suspect]
     Indication: PSORIASIS
  3. METEX                              /00082702/ [Concomitant]
     Dosage: 10 MG, UNK
     Route: 048
     Dates: start: 2010
  4. METEX                              /00082702/ [Concomitant]
     Dosage: 15 MG, QWK
     Route: 058
  5. METEX                              /00082702/ [Concomitant]
     Dosage: 10 MG, QWK
     Route: 048
  6. FOLIC ACID [Concomitant]
     Dosage: 5 MG, SATURDAY 2-0-0
  7. VIGANTOLETTEN [Concomitant]
     Dosage: 1-0-0
  8. L-THYROXIN [Concomitant]
     Dosage: 150 MUG, UNK
  9. CONTRACEPTIVE HD [Concomitant]
     Dosage: 1-0-0

REACTIONS (10)
  - Pyrexia [Not Recovered/Not Resolved]
  - Oropharyngeal pain [Not Recovered/Not Resolved]
  - Night sweats [Not Recovered/Not Resolved]
  - Arthralgia [Not Recovered/Not Resolved]
  - Weight increased [Not Recovered/Not Resolved]
  - Urinary tract infection [Not Recovered/Not Resolved]
  - Lymphadenopathy [Not Recovered/Not Resolved]
  - Injection site swelling [Unknown]
  - Injection site erythema [Unknown]
  - Injection site warmth [Unknown]
